FAERS Safety Report 6377807-7 (Version None)
Quarter: 2009Q3

REPORT INFORMATION
  Report Type: 
  Country: None (occurrence: None)
  Receive Date: 20090925
  Receipt Date: 20090917
  Transmission Date: 20100115
  Serious: Yes (Death)
  Sender: FDA-Public Use
  Company Number: DE-WYE-H11186409

PATIENT
  Age: 77 Year
  Sex: Female

DRUGS (11)
  1. AMIODARONE HCL [Suspect]
     Indication: ATRIAL FIBRILLATION
     Route: 048
     Dates: start: 19990101
  2. ENALAPRIL MALEATE [Concomitant]
     Route: 048
  3. EUTHROID-1 [Concomitant]
     Route: 048
  4. FLUCTIN [Concomitant]
     Route: 048
  5. MARCUMAR [Suspect]
     Dosage: 3 MG TABLET DOSE NOT PROVIDED
     Route: 048
  6. PULMICORT [Concomitant]
     Route: 055
  7. ALBUTEROL [Concomitant]
     Route: 055
  8. SPIRONOLACTONE [Concomitant]
     Route: 048
  9. CLINDAMYCIN [Suspect]
     Route: 048
  10. ATROVENT [Concomitant]
     Route: 055
  11. FUROSEMIDE [Concomitant]
     Route: 048

REACTIONS (1)
  - MULTI-ORGAN FAILURE [None]
